FAERS Safety Report 6396785-8 (Version None)
Quarter: 2009Q4

REPORT INFORMATION
  Report Type: 
  Country: None (occurrence: None)
  Receive Date: 20091012
  Receipt Date: 20090527
  Transmission Date: 20100525
  Serious: No
  Sender: FDA-Public Use
  Company Number: US-ASTRAZENECA-2009UW13516

PATIENT
  Sex: Female

DRUGS (3)
  1. SYMBICORT [Suspect]
     Dosage: 4 PUFFS
     Route: 055
  2. SYMBICORT [Suspect]
     Dosage: 2PUFFS
     Route: 055
  3. NYSTATIN [Concomitant]

REACTIONS (4)
  - ORAL PAIN [None]
  - OROPHARYNGEAL PAIN [None]
  - PHARYNGEAL ERYTHEMA [None]
  - STOMATITIS [None]
